FAERS Safety Report 6480117-0 (Version None)
Quarter: 2009Q4

REPORT INFORMATION
  Report Type: 
  Country: None (occurrence: None)
  Receive Date: 20091208
  Receipt Date: 20091110
  Transmission Date: 20100525
  Serious: No
  Sender: FDA-Public Use
  Company Number: US-BAYER-200916784BCC

PATIENT
  Age: 54 Year
  Sex: Female
  Weight: 73 kg

DRUGS (1)
  1. ALEVE [Suspect]
     Indication: WRIST FRACTURE
     Dosage: UNIT DOSE: 220 MG
     Route: 048
     Dates: start: 20071001, end: 20071001

REACTIONS (2)
  - ABNORMAL SENSATION IN EYE [None]
  - HEADACHE [None]
